FAERS Safety Report 5723820-X (Version None)
Quarter: 2008Q2

REPORT INFORMATION
  Report Type: 
  Country: None (occurrence: None)
  Receive Date: 20080429
  Receipt Date: 20080429
  Transmission Date: 20081010
  Serious: Yes (Hospitalization, Other)
  Sender: FDA-Public Use
  Company Number: None

PATIENT
  Age: 22 Year
  Sex: Female
  Weight: 68.0396 kg

DRUGS (2)
  1. YASMIN [Suspect]
     Indication: MENSTRUATION IRREGULAR
     Dosage: 28 DAILY PO
     Route: 048
     Dates: start: 20070313, end: 20080304
  2. YASMIN [Suspect]
     Indication: MUSCLE SPASMS
     Dosage: 28 DAILY PO
     Route: 048
     Dates: start: 20070313, end: 20080304

REACTIONS (17)
  - ANXIETY [None]
  - CHEST PAIN [None]
  - DELUSION [None]
  - DEPRESSION [None]
  - DIZZINESS [None]
  - FATIGUE [None]
  - FLIGHT OF IDEAS [None]
  - HEADACHE [None]
  - HEART RATE INCREASED [None]
  - HORMONE LEVEL ABNORMAL [None]
  - HYPOAESTHESIA [None]
  - INSOMNIA [None]
  - NAUSEA [None]
  - PALPITATIONS [None]
  - PANIC ATTACK [None]
  - TREMOR [None]
  - VOMITING [None]
